FAERS Safety Report 18595493 (Version 1)
Quarter: 2020Q4

REPORT INFORMATION
  Report Type: Spontaneous
  Country: CN (occurrence: CN)
  Receive Date: 20201209
  Receipt Date: 20201209
  Transmission Date: 20210114
  Serious: Yes (Other)
  Sender: FDA-Public Use
  Company Number: CN-PFIZER INC-2020483915

PATIENT
  Age: 3 Year
  Sex: Male
  Weight: 13.8 kg

DRUGS (2)
  1. NORMAL SALINE [Concomitant]
     Active Substance: SODIUM CHLORIDE
     Dosage: 50 ML, 4X/DAY (EVERY 6 HOURS)
     Route: 041
     Dates: start: 2020, end: 2020
  2. PIPERACILLIN/TAZOBACTAM [Suspect]
     Active Substance: PIPERACILLIN SODIUM\TAZOBACTAM SODIUM
     Indication: ANTI-INFECTIVE THERAPY
     Dosage: 1.125 G, 4X/DAY (EVERY 6 HOURS)
     Route: 041
     Dates: start: 2020, end: 2020

REACTIONS (2)
  - Myelosuppression [Recovering/Resolving]
  - Condition aggravated [Recovering/Resolving]

NARRATIVE: CASE EVENT DATE: 20201123
